FAERS Safety Report 26019397 (Version 1)
Quarter: 2025Q4

REPORT INFORMATION
  Report Type: Spontaneous
  Country: US (occurrence: US)
  Receive Date: 20251110
  Receipt Date: 20251110
  Transmission Date: 20260118
  Serious: Yes (Life-Threatening, Hospitalization)
  Sender: CIPLA
  Company Number: US-MLMSERVICE-20251029-PI692103-00050-1

PATIENT

DRUGS (1)
  1. AMLODIPINE [Suspect]
     Active Substance: AMLODIPINE BESYLATE
     Dosage: 320 MILLIGRAM (32 ? 10 MG AMLODIPINE TABS)
     Route: 048

REACTIONS (7)
  - Hypotension [Recovered/Resolved]
  - Blood creatinine increased [Recovered/Resolved]
  - Toxicity to various agents [Recovered/Resolved]
  - Intentional overdose [Unknown]
  - Nausea [Unknown]
  - Vomiting [Unknown]
  - Heart rate increased [Recovered/Resolved]
